FAERS Safety Report 14287007 (Version 1)
Quarter: 2017Q4

REPORT INFORMATION
  Report Type: Spontaneous
  Country: RU (occurrence: RU)
  Receive Date: 20171214
  Receipt Date: 20171214
  Transmission Date: 20180321
  Serious: Yes (Death, Other)
  Sender: FDA-Public Use
  Company Number: RU-009507513-1712RUS006734

PATIENT

DRUGS (1)
  1. NOXAFIL [Suspect]
     Active Substance: POSACONAZOLE
     Indication: ANTIFUNGAL PROPHYLAXIS
     Dosage: 200 MG, TID, STRICTLY AFTER MEALS
     Route: 048

REACTIONS (11)
  - Granulocytopenia [Unknown]
  - Drug ineffective [Unknown]
  - Diarrhoea [Unknown]
  - Vomiting [Unknown]
  - Food refusal [Unknown]
  - Infection [Unknown]
  - Bronchopulmonary aspergillosis [Fatal]
  - Bacteraemia [Unknown]
  - Body temperature increased [Unknown]
  - Nausea [Unknown]
  - Pneumonia [Unknown]
